FAERS Safety Report 13056520 (Version 1)
Quarter: 2016Q4

REPORT INFORMATION
  Report Type: Spontaneous
  Country: US (occurrence: US)
  Receive Date: 20161222
  Receipt Date: 20161222
  Transmission Date: 20170207
  Serious: Yes (Other)
  Sender: FDA-Public Use
  Company Number: PHHY2016US174421

PATIENT
  Age: 13 Year
  Sex: Female

DRUGS (1)
  1. TRAMETINIB [Suspect]
     Active Substance: TRAMETINIB
     Indication: OPTIC GLIOMA
     Dosage: UNK
     Route: 065

REACTIONS (6)
  - Dermatitis [Unknown]
  - Folliculitis [Unknown]
  - Xerosis [Unknown]
  - Angular cheilitis [Unknown]
  - Paronychia [Unknown]
  - Product use issue [Unknown]
